FAERS Safety Report 21538839 (Version 2)
Quarter: 2022Q4

REPORT INFORMATION
  Report Type: Report from Study
  Country: CA (occurrence: CA)
  Receive Date: 20221102
  Receipt Date: 20221109
  Transmission Date: 20230113
  Serious: No
  Sender: FDA-Public Use
  Company Number: CA-NOVARTISPH-NVSC2022CA244457

PATIENT
  Sex: Female

DRUGS (2)
  1. GLYCOPYRROLATE\INDACATEROL\MOMETASONE FUROATE [Suspect]
     Active Substance: GLYCOPYRROLATE\INDACATEROL\MOMETASONE FUROATE
     Indication: Asthma
     Dosage: UNK
  2. VENTOLIN [Concomitant]
     Active Substance: ALBUTEROL SULFATE
     Indication: Product used for unknown indication
     Dosage: UNK
     Route: 065

REACTIONS (5)
  - Blood immunoglobulin E increased [Unknown]
  - Lung diffusion test decreased [Recovering/Resolving]
  - Slow vital capacity decreased [Unknown]
  - Forced vital capacity decreased [Unknown]
  - Total lung capacity decreased [Unknown]

NARRATIVE: CASE EVENT DATE: 20220101
